FAERS Safety Report 9026017 (Version 2)
Quarter: 2013Q2

REPORT INFORMATION
  Report Type: Spontaneous
  Country: BR (occurrence: BR)
  Receive Date: 20130122
  Receipt Date: 20130412
  Transmission Date: 20140414
  Serious: Yes (Hospitalization, Other)
  Sender: FDA-Public Use
  Company Number: BR-ASTRAZENECA-2013SE02753

PATIENT
  Age: 796 Month
  Sex: Female
  Weight: 60 kg

DRUGS (4)
  1. SYMBICORT TURBUHALER [Suspect]
     Indication: ASTHMA
     Dosage: 160/4.5 MCG, BID
     Route: 055
     Dates: start: 201202, end: 20130110
  2. SYMBICORT TURBUHALER [Suspect]
     Indication: ASTHMA
     Dosage: 320/9MCG, UNKNOWN FREQUENCY
     Route: 055
  3. LOSARTAN [Concomitant]
     Indication: HYPERTENSION
     Route: 048
  4. SINVASCOR [Concomitant]
     Indication: BLOOD CHOLESTEROL INCREASED
     Route: 048

REACTIONS (3)
  - Osteoarthritis [Recovering/Resolving]
  - Rhinorrhoea [Recovered/Resolved]
  - Cough [Recovered/Resolved]
